FAERS Safety Report 7031670-X (Version None)
Quarter: 2010Q4

REPORT INFORMATION
  Report Type: 
  Country: None (occurrence: None)
  Receive Date: 20101001
  Receipt Date: 20100921
  Transmission Date: 20110411
  Serious: Yes (Hospitalization)
  Sender: FDA-Public Use
  Company Number: 2010AC000350

PATIENT
  Age: 70 Year
  Sex: Female

DRUGS (21)
  1. DIGOXIN [Suspect]
     Dosage: PO
     Route: 048
     Dates: start: 20070401, end: 20071201
  2. DIGOXIN [Suspect]
     Indication: HEART RATE INCREASED
     Dosage: 0.250 MG, BID, PO
     Route: 048
     Dates: start: 20070404, end: 20070405
  3. DIGOXIN [Suspect]
     Indication: HEART RATE INCREASED
     Dosage: 0.250 MG, QD, PO
     Route: 048
     Dates: start: 20070406
  4. ZETIA [Concomitant]
  5. TRICOR [Concomitant]
  6. NITROGLYCERIN [Concomitant]
  7. ASPIRIN [Concomitant]
  8. CIMETIDINE [Concomitant]
  9. BENADRYL [Concomitant]
  10. PREDNISONE [Concomitant]
  11. RANEXA [Concomitant]
  12. WELCHOL [Concomitant]
  13. CRESTOR [Concomitant]
  14. PLAVIX [Concomitant]
  15. WELLBUTRIN [Concomitant]
  16. CLONAZEPAM [Concomitant]
  17. LORTAB [Concomitant]
  18. AMBIENT [Concomitant]
  19. FOLIC ACID [Concomitant]
  20. CALCIUM [Concomitant]
  21. CHANTIX [Concomitant]

REACTIONS (14)
  - AORTIC VALVE INCOMPETENCE [None]
  - DIARRHOEA [None]
  - ECONOMIC PROBLEM [None]
  - HYPOTENSION [None]
  - INJURY [None]
  - MITRAL VALVE INCOMPETENCE [None]
  - MYOCARDIAL INFARCTION [None]
  - NAUSEA [None]
  - PAIN [None]
  - THERAPEUTIC AGENT TOXICITY [None]
  - UNEVALUABLE EVENT [None]
  - VENTRICULAR ARRHYTHMIA [None]
  - VENTRICULAR EXTRASYSTOLES [None]
  - VOMITING [None]
